FAERS Safety Report 16550547 (Version 1)
Quarter: 2019Q3

REPORT INFORMATION
  Report Type: Report from Study
  Country: None (occurrence: BR)
  Receive Date: 20190710
  Receipt Date: 20190710
  Transmission Date: 20191004
  Serious: Yes (Other)
  Sender: FDA-Public Use
  Company Number: BR-ABBVIE-19K-020-2844527-00

PATIENT
  Sex: Female

DRUGS (1)
  1. HUMIRA [Suspect]
     Active Substance: ADALIMUMAB
     Indication: RHEUMATOID ARTHRITIS
     Route: 058
     Dates: start: 20180703, end: 20190506

REACTIONS (5)
  - Malaise [Unknown]
  - Cataract [Recovered/Resolved]
  - Visual impairment [Unknown]
  - Intervertebral disc protrusion [Unknown]
  - Keratitis [Unknown]
